FAERS Safety Report 23813386 (Version 1)
Quarter: 2024Q2

REPORT INFORMATION
  Report Type: Other
  Country: CA (occurrence: CA)
  Receive Date: 20240503
  Receipt Date: 20240503
  Transmission Date: 20240716
  Serious: Yes (Other)
  Sender: FDA-Public Use
  Company Number: CA-APOTEX-2024AP005351

PATIENT
  Age: 37 Year
  Sex: Female

DRUGS (1)
  1. DULOXETINE [Suspect]
     Active Substance: DULOXETINE
     Indication: Migraine
     Dosage: 30 MILLIGRAM
     Route: 065

REACTIONS (5)
  - Drug intolerance [Unknown]
  - Off label use [Unknown]
  - Pain [Unknown]
  - Nausea [Unknown]
  - Serotonin syndrome [Unknown]
